FAERS Safety Report 10381005 (Version 1)
Quarter: 2014Q1

REPORT INFORMATION
  Report Type: Spontaneous
  Country: US (occurrence: None)
  Receive Date: 20140306
  Receipt Date: 20140306
  Transmission Date: 20141002
  Serious: Yes (Disabling)
  Sender: FDA-Public Use
  Company Number: 163-21880-13020794

PATIENT
  Age: 77 Year
  Sex: Male

DRUGS (21)
  1. REVLIMID (LENALIDOMIDE) (25 MILLIGRAM, CAPSULES) [Suspect]
     Indication: PLASMA CELL MYELOMA
     Dosage: 25 MG, 14 IN 14 D, PO
     Route: 048
     Dates: start: 201204
  2. VELCADE (BORTEZOMIB) [Suspect]
     Indication: PLASMA CELL MYELOMA
     Dosage: 1.3 MG/M2, D1, 4, 8, 11,
     Dates: start: 20120427, end: 20120828
  3. DEXAMETHASONE (DEXAMETHASONE) [Concomitant]
  4. ZOMETA (ZOLEDRONIC ACID) [Concomitant]
  5. ACETAMINOPHEN (PARACETAMOL) [Concomitant]
  6. ALLOPUTINOL (ALLOPRUINOL) [Concomitant]
  7. ASPIRIN ACETYLSALICYLIC ACID) [Concomitant]
  8. ATORVASTATIN (ATORVASTATIN) [Concomitant]
  9. BETOPTIC S(BETAXOLOL HYDROCHLORIDE) [Concomitant]
  10. CALCIUM 600 +D(CALCIUM D3 ?STADA^) [Concomitant]
  11. COLACE(DOCUSATE SODIUM) [Concomitant]
  12. D3 DOTS(COLECALCIFEROL) [Concomitant]
  13. FLOVENT HFA(FLUTICASONE PROPIONATE) [Concomitant]
  14. HYDRALAZINE(HYDRALAZINE) [Concomitant]
  15. LOSARTAN(LOSARTAN) [Concomitant]
  16. MAGNESIUM(MAGNESIUM) [Concomitant]
  17. MULTIVITAMINS(MULTIVITAMINS) [Concomitant]
  18. NORVASC(AMLODIPINE BESILATE) [Concomitant]
  19. SENNA GEN(SENNA) [Concomitant]
  20. SEROQUEL(QUETIAPINE FUMARATE) [Concomitant]
  21. ZANTAC(RANITIDINE HYDROCHLORIDE) [Suspect]

REACTIONS (5)
  - Neuropathy peripheral [None]
  - Plasma cell myeloma [None]
  - Fatigue [None]
  - Depression [None]
  - Anaemia [None]
